FAERS Safety Report 5812248-X (Version None)
Quarter: 2008Q3

REPORT INFORMATION
  Report Type: 
  Country: None (occurrence: None)
  Receive Date: 20080716
  Receipt Date: 20080711
  Transmission Date: 20090109
  Serious: Yes (Disabling)
  Sender: FDA-Public Use
  Company Number: US-MERCK-0807USA01177

PATIENT
  Age: 70 Year
  Sex: Male

DRUGS (3)
  1. ZOCOR [Suspect]
     Indication: BLOOD CHOLESTEROL
     Route: 048
     Dates: start: 20080301, end: 20080101
  2. ZOCOR [Suspect]
     Route: 065
     Dates: start: 20080101, end: 20080101
  3. ASCORBIC ACID [Concomitant]
     Route: 065

REACTIONS (4)
  - HERPES ZOSTER [None]
  - MUSCLE SPASMS [None]
  - PAIN [None]
  - PAIN IN EXTREMITY [None]
